FAERS Safety Report 13068306 (Version 1)
Quarter: 2016Q4

REPORT INFORMATION
  Report Type: Report from Study
  Country: CA (occurrence: CA)
  Receive Date: 20161228
  Receipt Date: 20161228
  Transmission Date: 20170207
  Serious: Yes (Other)
  Sender: FDA-Public Use
  Company Number: CA-JNJFOC-20161222108

PATIENT
  Age: 9 Year
  Sex: Male
  Weight: 42 kg

DRUGS (2)
  1. HYDROCORTISONE. [Concomitant]
     Active Substance: HYDROCORTISONE
     Indication: PREMEDICATION
     Route: 065
  2. REMICADE [Suspect]
     Active Substance: INFLIXIMAB
     Indication: COLITIS ULCERATIVE
     Route: 042

REACTIONS (6)
  - Infusion related reaction [Recovered/Resolved with Sequelae]
  - Cough [Recovered/Resolved with Sequelae]
  - Product use issue [Unknown]
  - Dyspnoea [Recovered/Resolved with Sequelae]
  - Off label use [Unknown]
  - Chest pain [Recovered/Resolved with Sequelae]

NARRATIVE: CASE EVENT DATE: 20161220
